FAERS Safety Report 7642481 (Version 5)
Quarter: 2013Q2

REPORT INFORMATION
  Report Type: Spontaneous
  Country: US (occurrence: US)
  Receive Date: 20101027
  Receipt Date: 20130404
  Transmission Date: 20140414
  Serious: Yes (Hospitalization, Other)
  Sender: FDA-Public Use
  Company Number: US-BAYER-201037765NA

PATIENT
  Age: 20 Year
  Sex: Female
  Weight: 50.79 kg

DRUGS (4)
  1. YASMIN [Suspect]
     Indication: CONTRACEPTION
     Dosage: UNK
     Route: 048
     Dates: start: 2003, end: 200403
  2. YASMIN [Suspect]
     Indication: ENDOMETRIOSIS
  3. YASMIN [Suspect]
     Indication: ACNE
  4. NEXIUM [Concomitant]
     Dosage: 40 MG, ONCE
     Route: 048

REACTIONS (11)
  - Biliary dyskinesia [None]
  - Gastritis [None]
  - Abdominal pain upper [None]
  - Abdominal pain [None]
  - Nausea [None]
  - Vomiting [None]
  - Leukocytosis [None]
  - Hepatobiliary scan abnormal [None]
  - Cholecystitis chronic [None]
  - Injury [None]
  - Pain [None]
